FAERS Safety Report 6162936-3 (Version None)
Quarter: 2009Q2

REPORT INFORMATION
  Report Type: 
  Country: None (occurrence: None)
  Receive Date: 20090420
  Receipt Date: 20090414
  Transmission Date: 20091009
  Serious: Yes (Hospitalization, Other)
  Sender: FDA-Public Use
  Company Number: TAP2009Q00442(0)

PATIENT
  Age: 49 Year
  Sex: Male

DRUGS (2)
  1. ULORIC [Suspect]
     Indication: GOUT
     Dosage: PER ORAL
     Route: 048
     Dates: start: 20090303
  2. NUMEROUS UNKNOWN MEDICATIONS (ALL OTHER THERAPEUTIC PRODUCTS) [Concomitant]

REACTIONS (3)
  - CARDIAC ENZYMES INCREASED [None]
  - MYOCARDITIS [None]
  - RENAL FAILURE [None]
